FAERS Safety Report 9133039 (Version 3)
Quarter: 2014Q1

REPORT INFORMATION
  Report Type: Report from Study
  Country: US (occurrence: US)
  Receive Date: 20130301
  Receipt Date: 20140113
  Transmission Date: 20141002
  Serious: Yes (Other)
  Sender: FDA-Public Use
  Company Number: US-ROCHE-1195182

PATIENT
  Sex: Male

DRUGS (2)
  1. CELLCEPT [Suspect]
     Indication: MYASTHENIA GRAVIS
     Route: 048
  2. CELLCEPT [Suspect]
     Indication: MYASTHENIA GRAVIS

REACTIONS (7)
  - Pneumonia [Unknown]
  - Blood disorder [Unknown]
  - Blindness transient [Unknown]
  - Hip arthroplasty [Unknown]
  - Herpes zoster [Recovered/Resolved]
  - Muscular weakness [Unknown]
  - Visual acuity reduced [Unknown]
